FAERS Safety Report 8895571 (Version 1)
Quarter: 2012Q4

REPORT INFORMATION
  Report Type: 
  Country: GB (occurrence: GB)
  Receive Date: 20121108
  Receipt Date: 20121108
  Transmission Date: 20130627
  Serious: Yes (Life-Threatening, Hospitalization)
  Sender: FDA-Public Use
  Company Number: GB-GLAXOSMITHKLINE-B0841414A

PATIENT
  Age: 72 Year

DRUGS (9)
  1. CEFUROXIME [Suspect]
     Route: 042
     Dates: start: 20110308, end: 20110308
  2. TRIMETHOPRIM [Suspect]
     Indication: URINARY TRACT INFECTION
     Dosage: 400MG Per day
     Route: 048
     Dates: start: 20110305, end: 20110305
  3. CEFTRIAXONE [Suspect]
     Indication: PANCREATITIS
     Dosage: 1G Per day
     Route: 042
     Dates: start: 20110308, end: 20110308
  4. METRONIDAZOLE [Suspect]
     Dosage: 1500MG Per day
     Route: 042
     Dates: start: 20110308, end: 20110308
  5. ERYTHROMYCIN [Suspect]
     Dosage: 375MG Per day
     Route: 048
     Dates: start: 20110319, end: 20110325
  6. PIPERACILLIN AND TAZOBACTAM [Suspect]
     Indication: PNEUMONIA
     Dosage: 13.5G Per day
     Route: 042
     Dates: start: 20110420, end: 20110425
  7. AMOXICILLIN\CLAVULANATE POTASSIUM [Suspect]
     Indication: SEPSIS
     Dosage: 3.6G Per day
     Route: 042
     Dates: start: 20110328, end: 20110403
  8. MEROPENEM [Suspect]
     Indication: PANCREATITIS NECROTISING
     Dosage: 3G Per day
     Route: 042
     Dates: start: 20110309, end: 20110313
  9. FLUCLOXACILLIN [Suspect]
     Dosage: 2000MG Per day
     Route: 048
     Dates: start: 20100908

REACTIONS (1)
  - Clostridium test positive [Recovered/Resolved]
